FAERS Safety Report 22250610 (Version 3)
Quarter: 2024Q1

REPORT INFORMATION
  Report Type: Spontaneous
  Country: US (occurrence: US)
  Receive Date: 20230425
  Receipt Date: 20240327
  Transmission Date: 20240410
  Serious: Yes (Death, Other)
  Sender: FDA-Public Use
  Company Number: US-PFIZER INC-2020493781

PATIENT
  Age: 81 Year
  Sex: Male
  Weight: 81.633 kg

DRUGS (13)
  1. VYNDAMAX [Suspect]
     Active Substance: TAFAMIDIS
     Indication: Cardiac amyloidosis
     Dosage: 61 MG, 1X/DAY
     Route: 048
     Dates: start: 2019
  2. VYNDAMAX [Suspect]
     Active Substance: TAFAMIDIS
     Indication: Amyloidosis
  3. VYNDAMAX [Suspect]
     Active Substance: TAFAMIDIS
     Indication: Cardiac amyloidosis
  4. ATORVASTATIN CALCIUM [Concomitant]
     Active Substance: ATORVASTATIN CALCIUM
     Dosage: 40 MG, 1X/DAY
  5. CALCITRIOL [Concomitant]
     Active Substance: CALCITRIOL
     Dosage: 0.25 UG, 1X/DAY
  6. CARVEDILOL [Concomitant]
     Active Substance: CARVEDILOL
     Dosage: 25 MG, 2X/DAY (1 AND 1 HALF TABLET)
  7. ISOSORBIDE MONONITRATE [Concomitant]
     Active Substance: ISOSORBIDE MONONITRATE
     Dosage: 120 MG, 1X/DAY
  8. PANTOPRAZOLE [Concomitant]
     Active Substance: PANTOPRAZOLE
     Dosage: 40 MG, 1X/DAY
  9. SPIRONOLACTONE [Concomitant]
     Active Substance: SPIRONOLACTONE
     Dosage: 25 MG, ALTERNATE DAY (EVERY OTHER DAY)
  10. ASPIRIN [Concomitant]
     Active Substance: ASPIRIN
     Dosage: 80 MG, 1X/DAY
  11. LUPRON [Concomitant]
     Active Substance: LEUPROLIDE ACETATE
     Indication: Prostate cancer
     Dosage: UNK, MONTHLY (GOES INTO DOCTOR FOR IT)
  12. ERLEADA [Concomitant]
     Active Substance: APALUTAMIDE
     Indication: Prostate cancer
     Dosage: 280 MG, 4X/DAY (TAKES 4 PILLS A DAY)
  13. ERLEADA [Concomitant]
     Active Substance: APALUTAMIDE
     Dosage: 200 MG, 4X/DAY (TAKES 4 PILLS A DAY)

REACTIONS (3)
  - Respiratory failure [Fatal]
  - Hydrocephalus [Unknown]
  - Atrial fibrillation [Unknown]
